FAERS Safety Report 7647141-3 (Version None)
Quarter: 2011Q3

REPORT INFORMATION
  Report Type: 
  Country: None (occurrence: None)
  Receive Date: 20110711
  Receipt Date: 20110318
  Transmission Date: 20111222
  Serious: Yes (Other)
  Sender: FDA-Public Use
  Company Number: IPC201103-000342

PATIENT
  Sex: Female

DRUGS (4)
  1. METOCLOPRAMIDE [Suspect]
     Dosage: 10 MG TABLET, ORAL
     Route: 048
     Dates: start: 20060301, end: 20101001
  2. METOCLOPRAMIDE HCL [Suspect]
     Dosage: 5 MG TABLET, ORAL
     Route: 048
     Dates: start: 20060301, end: 20101001
  3. REGLAN [Suspect]
     Dosage: ORAL
     Route: 048
     Dates: start: 20060301, end: 20101001
  4. METOCLOPRAMIDE HYDROCHLORIDE [Suspect]
     Dosage: 5 MG TABLET, ORAL
     Route: 048
     Dates: start: 20060301, end: 20101001

REACTIONS (1)
  - CONVULSION [None]
